FAERS Safety Report 4903017-3 (Version None)
Quarter: 2006Q1

REPORT INFORMATION
  Report Type: 
  Country: None (occurrence: None)
  Receive Date: 20060207
  Receipt Date: 20060201
  Transmission Date: 20060701
  Serious: Yes (Death, Life-Threatening, Hospitalization)
  Sender: FDA-Public Use
  Company Number: PHBS2006JP01748

PATIENT
  Age: 61 Year
  Sex: Male

DRUGS (3)
  1. CYCLOSPORINE [Suspect]
     Indication: RENAL TRANSPLANT
     Route: 065
  2. MYCOPHENOLATE MOFETIL [Suspect]
     Indication: RENAL TRANSPLANT
     Route: 065
  3. PREDNISOLONE [Suspect]
     Indication: RENAL TRANSPLANT
     Route: 065

REACTIONS (13)
  - ABDOMINAL PAIN LOWER [None]
  - ANURIA [None]
  - DEPRESSED LEVEL OF CONSCIOUSNESS [None]
  - DISSEMINATED INTRAVASCULAR COAGULATION [None]
  - ESCHERICHIA INFECTION [None]
  - HAEMODIALYSIS [None]
  - HEPATIC FAILURE [None]
  - HEPATITIS B [None]
  - HEPATITIS B E ANTIGEN [None]
  - NEPHRECTOMY [None]
  - PYELONEPHRITIS [None]
  - RENAL ABSCESS [None]
  - SEPSIS [None]
